FAERS Safety Report 19877044 (Version 1)
Quarter: 2021Q3

REPORT INFORMATION
  Report Type: Spontaneous
  Country: US (occurrence: US)
  Receive Date: 20210923
  Receipt Date: 20210923
  Transmission Date: 20211014
  Serious: No
  Sender: FDA-Public Use
  Company Number: US-GLAXOSMITHKLINE-US2021199873

PATIENT
  Age: 62 Year
  Sex: Female

DRUGS (1)
  1. NUCALA [Suspect]
     Active Substance: MEPOLIZUMAB
     Indication: ASTHMA
     Dosage: UNK
     Route: 058
     Dates: start: 2019

REACTIONS (9)
  - Asthma [Recovered/Resolved]
  - Product complaint [Unknown]
  - Dyspnoea [Recovered/Resolved]
  - Injection site haemorrhage [Recovered/Resolved]
  - Exposure via skin contact [Unknown]
  - Product dose omission issue [Unknown]
  - Injection site swelling [Unknown]
  - Accidental exposure to product [Unknown]
  - Injection site pain [Recovered/Resolved]

NARRATIVE: CASE EVENT DATE: 20210920
